FAERS Safety Report 8618612-8 (Version None)
Quarter: 2012Q3

REPORT INFORMATION
  Report Type: 
  Country: None (occurrence: None)
  Receive Date: 20120824
  Receipt Date: 20120820
  Transmission Date: 20120928
  Serious: No
  Sender: FDA-Public Use
  Company Number: US-PFIZER INC-2012204637

PATIENT
  Sex: Female

DRUGS (1)
  1. VISTARIL [Suspect]

REACTIONS (3)
  - HYPERSENSITIVITY [None]
  - DRUG PRESCRIBING ERROR [None]
  - SPEECH DISORDER [None]
